FAERS Safety Report 13980279 (Version 4)
Quarter: 2019Q3

REPORT INFORMATION
  Report Type: Report from Study
  Country: CH (occurrence: CH)
  Receive Date: 20170917
  Receipt Date: 20190819
  Transmission Date: 20191004
  Serious: Yes (Hospitalization, Other)
  Sender: FDA-Public Use
  Company Number: CH-BEH-2017083640

PATIENT
  Age: 54 Year
  Sex: Female

DRUGS (22)
  1. HIZENTRA [Suspect]
     Active Substance: HUMAN IMMUNOGLOBULIN G
     Dosage: UNK (DOSAGE: 1G)
     Route: 058
  2. ALDACTONE [Concomitant]
     Active Substance: SPIRONOLACTONE
     Route: 065
  3. HIZENTRA [Suspect]
     Active Substance: HUMAN IMMUNOGLOBULIN G
     Dosage: UNK (DOSAGE: 1G)
     Route: 058
  4. HIZENTRA [Suspect]
     Active Substance: HUMAN IMMUNOGLOBULIN G
     Dosage: UNK (DOSAGE: 4G)
     Route: 058
  5. HIZENTRA [Suspect]
     Active Substance: HUMAN IMMUNOGLOBULIN G
     Dosage: UNK (DOSAGE: 4G)
     Route: 058
  6. HIZENTRA [Suspect]
     Active Substance: HUMAN IMMUNOGLOBULIN G
     Dosage: UNK (DOSAGE: 1G)
     Route: 058
  7. HIZENTRA [Suspect]
     Active Substance: HUMAN IMMUNOGLOBULIN G
     Dosage: UNK (DOSAGE: 1G)
     Route: 058
  8. HIZENTRA [Suspect]
     Active Substance: HUMAN IMMUNOGLOBULIN G
     Dosage: UNK (DOSAGE: 1G)
     Route: 058
  9. ELTHROCIN [Concomitant]
     Route: 065
  10. EFFORTIL [Concomitant]
     Active Substance: ETILEFRINE HYDROCHLORIDE
     Route: 065
  11. HIZENTRA [Suspect]
     Active Substance: HUMAN IMMUNOGLOBULIN G
     Dosage: 25 ML, QW, 1 INJ SITE
     Route: 058
     Dates: start: 20170929, end: 20170929
  12. HIZENTRA [Suspect]
     Active Substance: HUMAN IMMUNOGLOBULIN G
     Dosage: 25 ML, QW, 1 INJ SITE
     Route: 058
     Dates: start: 20171004, end: 20171004
  13. HIZENTRA [Suspect]
     Active Substance: HUMAN IMMUNOGLOBULIN G
     Dosage: 25 ML, QW, 1 INJ SITE DURING 3 INF.
     Route: 058
     Dates: start: 2017
  14. HIZENTRA [Suspect]
     Active Substance: HUMAN IMMUNOGLOBULIN G
     Dosage: UNK (DOSAGE: 1G)
     Route: 058
  15. HIZENTRA [Suspect]
     Active Substance: HUMAN IMMUNOGLOBULIN G
     Dosage: UNK (DOSAGE: 4G)
     Route: 058
  16. HIZENTRA [Suspect]
     Active Substance: HUMAN IMMUNOGLOBULIN G
     Dosage: UNK (DOSAGE: 4G)
     Route: 058
  17. METFIN [Concomitant]
     Active Substance: METFORMIN HYDROCHLORIDE
     Route: 065
  18. HIZENTRA [Suspect]
     Active Substance: HUMAN IMMUNOGLOBULIN G
     Indication: IMMUNODEFICIENCY
     Dosage: 25 ML, QW, 2 INJ SITES
     Route: 058
     Dates: start: 20130426
  19. HIZENTRA [Suspect]
     Active Substance: HUMAN IMMUNOGLOBULIN G
     Dosage: 25 ML, QW, 2 SITES OF INJECTION
     Route: 065
     Dates: start: 2018
  20. HIZENTRA [Suspect]
     Active Substance: HUMAN IMMUNOGLOBULIN G
     Dosage: UNK (DOSAGE: 4G)
     Route: 058
  21. HIZENTRA [Suspect]
     Active Substance: HUMAN IMMUNOGLOBULIN G
     Dosage: UNK (DOSAGE: 4G)
     Route: 058
  22. HIZENTRA [Suspect]
     Active Substance: HUMAN IMMUNOGLOBULIN G
     Dosage: 25 ML, QW, 1 INJ SITE
     Route: 058
     Dates: start: 20171013, end: 20171013

REACTIONS (47)
  - Fatigue [Unknown]
  - Headache [Unknown]
  - Capillary fragility [Unknown]
  - Device use issue [Unknown]
  - Injection site swelling [Unknown]
  - Nasopharyngitis [Unknown]
  - Nasopharyngitis [Unknown]
  - Dyspnoea [Unknown]
  - Injection site pain [Recovered/Resolved]
  - Fatigue [Recovering/Resolving]
  - Injection site pain [Unknown]
  - Pain [Unknown]
  - Injection site swelling [Unknown]
  - Sinusitis [Unknown]
  - Migraine [Recovering/Resolving]
  - Infusion site swelling [Recovered/Resolved]
  - Arrhythmia [Unknown]
  - Infusion site calcification [Unknown]
  - Injection site swelling [Unknown]
  - Injection site pruritus [Unknown]
  - Pyrexia [Recovered/Resolved]
  - Nasopharyngitis [Recovered/Resolved]
  - Headache [Recovering/Resolving]
  - Sjogren^s syndrome [Unknown]
  - Injection site discomfort [Unknown]
  - Cough [Unknown]
  - Cough [Recovered/Resolved]
  - Fatigue [Unknown]
  - Fatigue [Unknown]
  - Fatigue [Unknown]
  - Chronic sinusitis [Recovered/Resolved]
  - Nasopharyngitis [Unknown]
  - Aphonia [Unknown]
  - Pyrexia [Unknown]
  - Lung infection [Unknown]
  - Injection site swelling [Recovered/Resolved]
  - Headache [Unknown]
  - Injection site haematoma [Unknown]
  - Infusion site induration [Unknown]
  - Sinusitis [Recovered/Resolved]
  - Capillary fragility [Unknown]
  - Injection site pruritus [Unknown]
  - Headache [Unknown]
  - Cardiac disorder [Unknown]
  - Injection site swelling [Unknown]
  - Migraine [Unknown]
  - Injection site swelling [Recovered/Resolved]

NARRATIVE: CASE EVENT DATE: 2013
